FAERS Safety Report 24128732 (Version 1)
Quarter: 2024Q3

REPORT INFORMATION
  Report Type: Spontaneous
  Country: US (occurrence: None)
  Receive Date: 20240723
  Receipt Date: 20240723
  Transmission Date: 20241017
  Serious: No
  Sender: Public
  Company Number: None

PATIENT
  Sex: Female

DRUGS (1)
  1. TERIPARATIDE ACETATE [Suspect]
     Active Substance: TERIPARATIDE ACETATE
     Indication: Senile osteoporosis
     Dosage: 20 MCG DAILY UNDER THE SKIN
     Route: 058
     Dates: start: 202402

REACTIONS (1)
  - Chest pain [None]
